FAERS Safety Report 21385339 (Version 1)
Quarter: 2022Q3

REPORT INFORMATION
  Report Type: Spontaneous
  Country: GR (occurrence: GR)
  Receive Date: 20220928
  Receipt Date: 20220928
  Transmission Date: 20221027
  Serious: Yes (Hospitalization)
  Sender: FDA-Public Use
  Company Number: GR-BRISTOL-MYERS SQUIBB COMPANY-2022-080718

PATIENT
  Age: 46 Year
  Sex: Male

DRUGS (2)
  1. REBLOZYL [Suspect]
     Active Substance: LUSPATERCEPT-AAMT
     Indication: Thalassaemia beta
     Dosage: DOSE: UNKNOWN, FREQUENCY: UNKNOWN?EXPIRY DATE: -JUL-2023 (SAME FOR 75 MG+25 MG ACCORDINGLY)
     Route: 058
     Dates: start: 20220511, end: 20220622
  2. ACYCLOVIR [Concomitant]
     Active Substance: ACYCLOVIR
     Indication: Product used for unknown indication
     Dosage: 800 MGX2, BD

REACTIONS (5)
  - Pain [Unknown]
  - Pyrexia [Recovered/Resolved]
  - Bone pain [Recovered/Resolved]
  - Libido decreased [Recovered/Resolved]
  - Fatigue [Recovered/Resolved]

NARRATIVE: CASE EVENT DATE: 20220515
